FAERS Safety Report 5507617-1 (Version None)
Quarter: 2007Q4

REPORT INFORMATION
  Report Type: 
  Country: None (occurrence: None)
  Receive Date: 20071102
  Receipt Date: 20071004
  Transmission Date: 20080405
  Serious: Yes (Hospitalization)
  Sender: FDA-Public Use
  Company Number: 20070241

PATIENT
  Age: 9 Year
  Sex: Male
  Weight: 30.391 kg

DRUGS (1)
  1. VENOFER [Suspect]
     Indication: IRON DEFICIENCY ANAEMIA
     Dosage: 58 MG, IV Q MONTH

REACTIONS (1)
  - PULMONARY EMBOLISM [None]
